FAERS Safety Report 24151063 (Version 1)
Quarter: 2024Q3

REPORT INFORMATION
  Report Type: Spontaneous
  Country: US (occurrence: None)
  Receive Date: 20240729
  Receipt Date: 20240729
  Transmission Date: 20241016
  Serious: No
  Sender: Public
  Company Number: None

PATIENT
  Age: 83 Year
  Sex: Female
  Weight: 81 kg

DRUGS (9)
  1. LEQVIO [Suspect]
     Active Substance: INCLISIRAN SODIUM
     Indication: Blood cholesterol increased
     Dosage: OTHER QUANTITY : 1 INJECTIONS ;?
  2. SYNTHROID [Concomitant]
     Active Substance: LEVOTHYROXINE SODIUM
  3. BYSTOLIC [Concomitant]
  4. DILTIAZEM [Concomitant]
  5. COENZYME Q10 [Concomitant]
     Active Substance: DIETARY SUPPLEMENT\UBIDECARENONE
  6. CRANBERRY [Concomitant]
     Active Substance: CRANBERRY
  7. PUMPKIN SEED [Concomitant]
     Active Substance: PUMPKIN SEED
  8. OMEGA 3 [Concomitant]
     Active Substance: CAPSAICIN
  9. lutein [Concomitant]

REACTIONS (6)
  - Arthropathy [None]
  - Paralysis [None]
  - Arthralgia [None]
  - Synovial fluid analysis abnormal [None]
  - Pain in extremity [None]
  - Musculoskeletal stiffness [None]

NARRATIVE: CASE EVENT DATE: 20240702
